FAERS Safety Report 5081173-7 (Version None)
Quarter: 2006Q3

REPORT INFORMATION
  Report Type: 
  Country: None (occurrence: None)
  Receive Date: 20060814
  Receipt Date: 20060814
  Transmission Date: 20061208
  Serious: Yes (Other)
  Sender: FDA-Public Use
  Company Number: None

PATIENT
  Age: 32 Year
  Sex: Male
  Weight: 82.5 kg

DRUGS (1)
  1. PROPOROL 10 MG PER ML HOSPIRA, INC [Suspect]
     Indication: INDUCTION OF ANAESTHESIA
     Dosage: 300 MG TOTAL IV BOLUS
     Route: 040
     Dates: start: 20060807, end: 20060807

REACTIONS (1)
  - INADEQUATE ANALGESIA [None]
